FAERS Safety Report 9052934 (Version 1)
Quarter: 2013Q1

REPORT INFORMATION
  Report Type: Spontaneous
  Country: US (occurrence: US)
  Receive Date: 20130208
  Receipt Date: 20130208
  Transmission Date: 20140127
  Serious: No
  Sender: FDA-Public Use
  Company Number: US-009507513-1302USA000635

PATIENT
  Sex: 0

DRUGS (14)
  1. ZOCOR [Suspect]
     Route: 048
  2. VIAGRA [Suspect]
  3. LEVITRA [Suspect]
  4. HYDROCODONE [Concomitant]
     Dosage: UNK, PRN
  5. ACETAMINOPHEN (+) ASPIRIN [Concomitant]
     Dosage: 1 DF, QD
     Route: 048
  6. SODIUM (UNSPECIFIED) [Concomitant]
  7. CRESTOR [Concomitant]
     Dosage: 1 DF, QD
     Route: 048
  8. HYDROCHLOROTHIAZIDE [Concomitant]
     Dosage: 1 DF, QD
     Route: 048
  9. VITAMINS (UNSPECIFIED) [Concomitant]
     Dosage: 1 DF, QD
     Route: 048
  10. TIKOSYN [Concomitant]
     Dosage: 1 DF, BID
     Route: 048
  11. NITROSTAT [Concomitant]
     Indication: CHEST PAIN
  12. BENAZEPRIL HYDROCHLORIDE [Concomitant]
     Route: 048
  13. METOPROLOL TARTRATE [Concomitant]
     Dosage: 1 DF, BID
     Route: 048
  14. VERAPAMIL HYDROCHLORIDE [Concomitant]
     Dosage: 1 DF, QD
     Route: 048

REACTIONS (3)
  - Chest pain [Unknown]
  - Nausea [Unknown]
  - Swelling [Unknown]
